FAERS Safety Report 26132705 (Version 2)
Quarter: 2025Q4

REPORT INFORMATION
  Report Type: Spontaneous
  Country: EU (occurrence: EU)
  Receive Date: 20251208
  Receipt Date: 20251210
  Transmission Date: 20260118
  Serious: Yes (Hospitalization, Other)
  Sender: AMGEN
  Company Number: EU-AMGEN-DEUSP2025242265

PATIENT
  Age: 47 Year
  Sex: Female

DRUGS (1)
  1. PROCYSBI [Suspect]
     Active Substance: CYSTEAMINE BITARTRATE
     Indication: Cystinosis
     Dosage: UNK
     Route: 048

REACTIONS (8)
  - Ischaemic stroke [Unknown]
  - Diabetes mellitus [Unknown]
  - Amyotrophy [Unknown]
  - Dysphagia [Unknown]
  - Restrictive pulmonary disease [Unknown]
  - Myopathy [Unknown]
  - Muscular weakness [Unknown]
  - Foot deformity [Unknown]
